FAERS Safety Report 6070925-2 (Version None)
Quarter: 2009Q1

REPORT INFORMATION
  Report Type: 
  Country: None (occurrence: None)
  Receive Date: 20090209
  Receipt Date: 20090128
  Transmission Date: 20090719
  Serious: Yes (Hospitalization)
  Sender: FDA-Public Use
  Company Number: NO-PFIZER INC-2009165666

PATIENT

DRUGS (1)
  1. DOSTINEX [Suspect]

REACTIONS (2)
  - AORTIC ANEURYSM [None]
  - HEART VALVE INCOMPETENCE [None]
